FAERS Safety Report 8299229-4 (Version None)
Quarter: 2012Q2

REPORT INFORMATION
  Report Type: 
  Country: None (occurrence: None)
  Receive Date: 20120419
  Receipt Date: 20120417
  Transmission Date: 20120825
  Serious: Yes (Other)
  Sender: FDA-Public Use
  Company Number: PHEH2012US008260

PATIENT
  Sex: Male
  Weight: 81.633 kg

DRUGS (1)
  1. GILENYA [Suspect]
     Indication: RELAPSING-REMITTING MULTIPLE SCLEROSIS
     Dosage: 0.5 MG, DAILY
     Route: 048
     Dates: start: 20110414

REACTIONS (5)
  - HEAD DISCOMFORT [None]
  - BALANCE DISORDER [None]
  - DIPLOPIA [None]
  - FALL [None]
  - DIZZINESS [None]
